FAERS Safety Report 7189123-4 (Version None)
Quarter: 2010Q4

REPORT INFORMATION
  Report Type: 
  Country: None (occurrence: None)
  Receive Date: 20101222
  Receipt Date: 20100802
  Transmission Date: 20110411
  Serious: No
  Sender: FDA-Public Use
  Company Number: US-AMGEN-KDL428349

PATIENT

DRUGS (20)
  1. ENBREL [Suspect]
     Indication: PRODUCT USED FOR UNKNOWN INDICATION
     Dosage: 50 MG, QWK
     Route: 058
  2. MONTELUKAST [Concomitant]
     Dosage: 10 MG, UNK
  3. DESVENLAFAXINE [Concomitant]
     Dosage: 50 MG, UNK
  4. ALPRAZOLAM [Concomitant]
     Dosage: .5 MG, UNK
  5. HYDROXYCHLOROQUINE SULFATE [Concomitant]
     Dosage: 200 MG, UNK
  6. DICYCLOVERINE HYDROCHLORIDE [Concomitant]
     Dosage: 10 MG, UNK
  7. CETIRIZINE HYDROCHLORIDE [Concomitant]
     Dosage: 10 MG, UNK
  8. METHYLPHENIDATE HCL [Concomitant]
     Dosage: 20 MG, UNK
  9. RABEPRAZOLE SODIUM [Concomitant]
     Dosage: 20 MG, UNK
  10. MOMETASONE FUROATE MONOHYDRATE [Concomitant]
     Dosage: 50 A?G, UNK
  11. LEFLUNOMIDE [Concomitant]
     Dosage: 20 MG, UNK
  12. PROCHLORPERAZINE [Concomitant]
     Dosage: 10 MG, UNK
  13. DIGOXIN [Concomitant]
     Dosage: .25 MG, UNK
  14. FLUTICASONE PROPIONATE [Concomitant]
  15. BUPROPION [Concomitant]
     Dosage: 200 MG, UNK
  16. FAMOTIDINE [Concomitant]
     Dosage: 10 MG, UNK
  17. EPINEPHRINE [Concomitant]
     Dosage: .3 MG, UNK
  18. AMITRIPTYLINE HCL [Concomitant]
     Dosage: 75 MG, UNK
  19. NEBIVOLOL HCL [Concomitant]
     Dosage: 10 MG, UNK
  20. XOPENEX [Concomitant]

REACTIONS (4)
  - GRIP STRENGTH DECREASED [None]
  - HYPERSENSITIVITY [None]
  - INJECTION SITE PAIN [None]
  - SINUSITIS [None]
